FAERS Safety Report 4894256-9 (Version None)
Quarter: 2006Q1

REPORT INFORMATION
  Report Type: 
  Country: None (occurrence: None)
  Receive Date: 20060127
  Receipt Date: 20051121
  Transmission Date: 20060701
  Serious: No
  Sender: FDA-Public Use
  Company Number: US-GLAXOSMITHKLINE-A0583770A

PATIENT

DRUGS (1)
  1. WELLBUTRIN [Suspect]
     Indication: DRUG USE FOR UNKNOWN INDICATION
     Dosage: 450MG UNKNOWN
     Route: 048

REACTIONS (5)
  - APATHY [None]
  - ASTHENIA [None]
  - GASTRIC DISORDER [None]
  - HAEMATOCHEZIA [None]
  - STOMACH DISCOMFORT [None]
